FAERS Safety Report 6274655-3 (Version None)
Quarter: 2009Q3

REPORT INFORMATION
  Report Type: 
  Country: None (occurrence: None)
  Receive Date: 20090717
  Receipt Date: 20090706
  Transmission Date: 20100115
  Serious: Yes (Hospitalization)
  Sender: FDA-Public Use
  Company Number: 8048599

PATIENT
  Age: 5 Year

DRUGS (1)
  1. KEPPRA [Suspect]
     Dosage: 1250 MG

REACTIONS (2)
  - DEHYDRATION [None]
  - FEEDING DISORDER [None]
